FAERS Safety Report 12988485 (Version 1)
Quarter: 2016Q4

REPORT INFORMATION
  Report Type: Report from Study
  Country: None (occurrence: BR)
  Receive Date: 20161130
  Receipt Date: 20161130
  Transmission Date: 20170207
  Serious: Yes (Other)
  Sender: FDA-Public Use
  Company Number: BR-ABBVIE-16K-020-1793408-00

PATIENT
  Sex: Female
  Weight: 57 kg

DRUGS (7)
  1. HUMIRA [Suspect]
     Active Substance: ADALIMUMAB
     Route: 058
     Dates: start: 2016
  2. HUMIRA [Suspect]
     Active Substance: ADALIMUMAB
     Route: 058
  3. HUMIRA [Suspect]
     Active Substance: ADALIMUMAB
     Route: 058
     Dates: end: 2016
  4. MESALAZINE [Concomitant]
     Active Substance: MESALAMINE
     Indication: GASTROINTESTINAL INFLAMMATION
     Route: 048
     Dates: start: 2000
  5. HUMIRA [Suspect]
     Active Substance: ADALIMUMAB
     Route: 058
  6. HUMIRA [Suspect]
     Active Substance: ADALIMUMAB
     Indication: RHEUMATOID ARTHRITIS
     Route: 058
     Dates: start: 2015, end: 2015
  7. METICORTEN [Concomitant]
     Active Substance: PREDNISONE
     Indication: PRODUCT USED FOR UNKNOWN INDICATION
     Route: 048
     Dates: start: 20161115

REACTIONS (9)
  - Haemorrhage [Recovered/Resolved]
  - Arthralgia [Recovered/Resolved]
  - Colitis [Not Recovered/Not Resolved]
  - Diarrhoea [Not Recovered/Not Resolved]
  - Drug ineffective [Unknown]
  - Large intestinal haemorrhage [Not Recovered/Not Resolved]
  - Back pain [Recovered/Resolved]
  - Arthralgia [Recovering/Resolving]
  - Back pain [Recovering/Resolving]

NARRATIVE: CASE EVENT DATE: 2016
